FAERS Safety Report 23620609 (Version 1)
Quarter: 2024Q1

REPORT INFORMATION
  Report Type: Other
  Country: US (occurrence: None)
  Receive Date: 20240312
  Receipt Date: 20240312
  Transmission Date: 20240410
  Serious: No
  Sender: FDA-Public Use
  Company Number: US-ROCHE-3520116

PATIENT
  Age: 51 Year
  Sex: Male
  Weight: 77.634 kg

DRUGS (1)
  1. OCREVUS [Suspect]
     Active Substance: OCRELIZUMAB
     Indication: Relapsing-remitting multiple sclerosis
     Dosage: DATE OF TREATMENT: 20/JAN/2023, 20/JUL/2023, 26/JAN/2024, 09/FEB/2024
     Route: 042
     Dates: start: 2000

REACTIONS (7)
  - COVID-19 [Recovered/Resolved]
  - Seasonal allergy [Not Recovered/Not Resolved]
  - Anosmia [Recovered/Resolved]
  - Fatigue [Recovered/Resolved]
  - Pulmonary congestion [Recovered/Resolved]
  - Influenza [Unknown]
  - Irritable bowel syndrome [Not Recovered/Not Resolved]

NARRATIVE: CASE EVENT DATE: 20240101
